FAERS Safety Report 4975345-7 (Version None)
Quarter: 2006Q2

REPORT INFORMATION
  Report Type: 
  Country: None (occurrence: None)
  Receive Date: 20060418
  Receipt Date: 20051128
  Transmission Date: 20061013
  Serious: Yes (Hospitalization)
  Sender: FDA-Public Use
  Company Number: US-MERCK-0511USA04503

PATIENT
  Age: 64 Year
  Sex: Male

DRUGS (4)
  1. VIOXX [Suspect]
     Route: 048
     Dates: start: 19990801, end: 20040501
  2. METOPROLOL [Concomitant]
     Route: 065
  3. LIPITOR [Concomitant]
     Route: 065
  4. ASPIRIN [Concomitant]
     Route: 065

REACTIONS (5)
  - ANGINA UNSTABLE [None]
  - CARDIOMEGALY [None]
  - CAROTID ARTERY STENOSIS [None]
  - CORONARY ARTERY DISEASE [None]
  - COUGH [None]
